FAERS Safety Report 12651750 (Version 2)
Quarter: 2016Q3

REPORT INFORMATION
  Report Type: Spontaneous
  Country: NL (occurrence: NL)
  Receive Date: 20160815
  Receipt Date: 20160830
  Transmission Date: 20161109
  Serious: Yes (Death)
  Sender: FDA-Public Use
  Company Number: NL-PFIZER INC-2016377235

PATIENT
  Age: 46 Year
  Sex: Female

DRUGS (1)
  1. PACLITAXEL. [Suspect]
     Active Substance: PACLITAXEL
     Indication: INVASIVE DUCTAL BREAST CARCINOMA
     Dosage: 80 MG/M2, IN A WEEKLY SCHEDULE (ON DAY 1, 8, 15, 22, 29 AND 36 PER 8 WEEKS)
     Dates: start: 2014

REACTIONS (2)
  - Neuropathy peripheral [Unknown]
  - Liver injury [Fatal]
